FAERS Safety Report 8168726-4 (Version None)
Quarter: 2012Q1

REPORT INFORMATION
  Report Type: 
  Country: None (occurrence: None)
  Receive Date: 20120227
  Receipt Date: 20120217
  Transmission Date: 20120608
  Serious: Yes (Hospitalization)
  Sender: FDA-Public Use
  Company Number: KR-PERRIGO-12KR001392

PATIENT
  Age: 46 Year
  Sex: Male

DRUGS (2)
  1. NAPROXEN SODIUM [Suspect]
     Indication: NASOPHARYNGITIS
     Dosage: UNK
     Route: 048
  2. AZELASTINE HCL [Suspect]
     Indication: NASOPHARYNGITIS
     Dosage: UNK
     Route: 048

REACTIONS (6)
  - OESOPHAGEAL INJURY [None]
  - REGURGITATION [None]
  - MERYCISM [None]
  - DYSPHAGIA [None]
  - OESOPHAGEAL ULCER [None]
  - ODYNOPHAGIA [None]
